FAERS Safety Report 24079739 (Version 2)
Quarter: 2024Q3

REPORT INFORMATION
  Report Type: Spontaneous
  Country: RU (occurrence: RU)
  Receive Date: 20240711
  Receipt Date: 20240822
  Transmission Date: 20241017
  Serious: Yes (Other)
  Sender: TEVA
  Company Number: RU-TEVA-VS-3217666

PATIENT
  Sex: Male

DRUGS (8)
  1. GEMCITABINE [Suspect]
     Active Substance: GEMCITABINE
     Indication: Peritoneal mesothelioma malignant
     Dosage: 12?CYCLES (ALONG WITH CARBOPLATIN)
     Route: 065
  2. GEMCITABINE [Suspect]
     Active Substance: GEMCITABINE
     Indication: Peritoneal mesothelioma malignant
     Dosage: 4?CYCLES OF MONOTHERAPY
     Route: 065
  3. BEVACIZUMAB [Concomitant]
     Active Substance: BEVACIZUMAB
     Indication: Peritoneal mesothelioma malignant
     Route: 065
     Dates: start: 202010
  4. BEVACIZUMAB [Concomitant]
     Active Substance: BEVACIZUMAB
     Indication: Peritoneal mesothelioma malignant
     Route: 065
     Dates: end: 202111
  5. VINORELBINE [Suspect]
     Active Substance: VINORELBINE TARTRATE
     Indication: Peritoneal mesothelioma malignant
     Dosage: ON DAYS 1 AND 8
     Route: 065
     Dates: start: 202010, end: 202105
  6. CARBOPLATIN [Suspect]
     Active Substance: CARBOPLATIN
     Indication: Peritoneal mesothelioma malignant
     Dosage: 12?CYCLES (ALONG WITH GEMCITABINE)
     Route: 065
  7. PEMBROLIZUMAB [Suspect]
     Active Substance: PEMBROLIZUMAB
     Indication: Peritoneal mesothelioma malignant
     Dosage: MONOTHERAPY
     Route: 065
     Dates: start: 2020
  8. DOXORUBICIN [Concomitant]
     Active Substance: DOXORUBICIN
     Indication: Peritoneal mesothelioma malignant
     Route: 065
     Dates: start: 2020

REACTIONS (4)
  - Drug ineffective [Unknown]
  - Asthenia [Unknown]
  - Drug intolerance [Unknown]
  - Neuropathy peripheral [Unknown]

NARRATIVE: CASE EVENT DATE: 20210501
